FAERS Safety Report 14186188 (Version 1)
Quarter: 2017Q4

REPORT INFORMATION
  Report Type: Spontaneous
  Country: US (occurrence: US)
  Receive Date: 20171114
  Receipt Date: 20171114
  Transmission Date: 20180321
  Serious: Yes (Other)
  Sender: FDA-Public Use
  Company Number: US-WEST-WARD PHARMACEUTICALS CORP.-US-H14001-17-04302

PATIENT
  Age: 42 Year
  Sex: Female

DRUGS (4)
  1. DEXAMETHASONE. [Suspect]
     Active Substance: DEXAMETHASONE
     Indication: NEUROPATHY PERIPHERAL
     Dosage: 2 DOSES
     Route: 042
  2. ASPIRIN. [Concomitant]
     Active Substance: ASPIRIN
     Indication: PROPHYLAXIS
     Route: 065
  3. LENALIDOMIDE [Interacting]
     Active Substance: LENALIDOMIDE
     Indication: NEUROPATHY PERIPHERAL
     Route: 048
  4. CARFILZOMIB [Interacting]
     Active Substance: CARFILZOMIB
     Indication: NEUROPATHY PERIPHERAL
     Dosage: 3 DOSES
     Route: 042

REACTIONS (4)
  - Cardiotoxicity [Recovered/Resolved]
  - Myocardial fibrosis [Not Recovered/Not Resolved]
  - Ventricular tachycardia [Recovered/Resolved]
  - Drug interaction [Unknown]
